FAERS Safety Report 15334484 (Version 1)
Quarter: 2018Q3

REPORT INFORMATION
  Report Type: Spontaneous
  Country: US (occurrence: US)
  Receive Date: 20180830
  Receipt Date: 20180830
  Transmission Date: 20181010
  Serious: Yes (Death, Hospitalization, Other)
  Sender: FDA-Public Use
  Company Number: US-ROCHE-2175332

PATIENT
  Age: 21 Year
  Sex: Male

DRUGS (4)
  1. CLONAZEPAM. [Suspect]
     Active Substance: CLONAZEPAM
     Indication: PRODUCT USED FOR UNKNOWN INDICATION
     Dosage: DURING BED TIME
     Route: 065
     Dates: end: 20180615
  2. SUBOXONE [Suspect]
     Active Substance: BUPRENORPHINE HYDROCHLORIDE\NALOXONE HYDROCHLORIDE
     Indication: PAIN
     Route: 060
     Dates: start: 20180612, end: 20180615
  3. GABAPENTIN. [Suspect]
     Active Substance: GABAPENTIN
     Indication: PRODUCT USED FOR UNKNOWN INDICATION
     Route: 065
     Dates: end: 20180615
  4. SERTRALINE [Concomitant]
     Active Substance: SERTRALINE HYDROCHLORIDE
     Route: 065

REACTIONS (10)
  - Pneumonia [Unknown]
  - Cardio-respiratory arrest [Unknown]
  - Brain herniation [Fatal]
  - Nausea [Unknown]
  - Loss of consciousness [Unknown]
  - Cerebral ischaemia [Unknown]
  - Mania [Unknown]
  - Drug screen negative [Unknown]
  - Off label use [Unknown]
  - Brain oedema [Fatal]

NARRATIVE: CASE EVENT DATE: 20180615
